FAERS Safety Report 10037182 (Version 1)
Quarter: 2014Q1

REPORT INFORMATION
  Report Type: Spontaneous
  Country: KR (occurrence: None)
  Receive Date: 20140324
  Receipt Date: 20140324
  Transmission Date: 20141002
  Serious: Yes (Death, Life-Threatening)
  Sender: FDA-Public Use
  Company Number: FK201400935

PATIENT
  Age: 65 Year
  Sex: Male

DRUGS (2)
  1. AMIODARONE HCL [Suspect]
     Indication: ATRIAL FIBRILLATION
  2. AMIODARONE HCL [Suspect]
     Indication: VENTRICULAR TACHYCARDIA

REACTIONS (13)
  - Sudden cardiac death [None]
  - Pulmonary toxicity [None]
  - Drug-induced liver injury [None]
  - Hyperthyroidism [None]
  - Atypical pneumonia [None]
  - Pulmonary haemorrhage [None]
  - Acute respiratory distress syndrome [None]
  - Ventricular arrhythmia [None]
  - Multi-organ disorder [None]
  - Toxicity to various agents [None]
  - Aspergillus test positive [None]
  - Staphylococcus test positive [None]
  - Haemoptysis [None]
